FAERS Safety Report 4535666-9 (Version None)
Quarter: 2004Q4

REPORT INFORMATION
  Report Type: 
  Country: None (occurrence: None)
  Receive Date: 20041223
  Receipt Date: 20031105
  Transmission Date: 20050328
  Serious: No
  Sender: FDA-Public Use
  Company Number: US-GLAXOSMITHKLINE-A0433124A

PATIENT
  Age: 61 Year
  Sex: Female

DRUGS (1)
  1. FLONASE [Suspect]
     Dosage: 2SPR PER DAY
     Route: 045
     Dates: start: 20031031, end: 20031105

REACTIONS (7)
  - ANOREXIA [None]
  - DIARRHOEA [None]
  - EYELID MARGIN CRUSTING [None]
  - INSOMNIA [None]
  - NAUSEA [None]
  - PRURITUS [None]
  - VOMITING [None]
